FAERS Safety Report 8508071 (Version 7)
Quarter: 2018Q3

REPORT INFORMATION
  Report Type: Spontaneous
  Country: US (occurrence: US)
  Receive Date: 20120412
  Receipt Date: 20180821
  Transmission Date: 20181010
  Serious: Yes (Hospitalization)
  Sender: FDA-Public Use
  Company Number: US-ASTRAZENECA-2012SE05568

PATIENT
  Age: 20569 Day
  Sex: Female

DRUGS (2)
  1. NEXIUM [Suspect]
     Active Substance: ESOMEPRAZOLE MAGNESIUM
     Route: 048
  2. SYMBICORT [Suspect]
     Active Substance: BUDESONIDE\FORMOTEROL FUMARATE DIHYDRATE
     Dosage: 160/4.5 MCG, UNKNOWN UNKNOWN
     Route: 055
     Dates: start: 2009

REACTIONS (14)
  - Cataract [Unknown]
  - Lacrimation increased [Unknown]
  - Dysphonia [Unknown]
  - Eye pain [Not Recovered/Not Resolved]
  - Chronic obstructive pulmonary disease [Unknown]
  - Bronchitis [Unknown]
  - Drug dose omission [Unknown]
  - Dyspepsia [Unknown]
  - Glaucoma [Unknown]
  - Gastrooesophageal reflux disease [Unknown]
  - Feeding disorder [Unknown]
  - Eye disorder [Unknown]
  - Panic attack [Unknown]
  - Malaise [Unknown]

NARRATIVE: CASE EVENT DATE: 20170309
